FAERS Safety Report 13832804 (Version 1)
Quarter: 2017Q3

REPORT INFORMATION
  Report Type: Spontaneous
  Country: US (occurrence: US)
  Receive Date: 20170804
  Receipt Date: 20170804
  Transmission Date: 20171127
  Serious: No
  Sender: FDA-Public Use
  Company Number: US-PFIZER INC-2017336830

PATIENT
  Sex: Female
  Weight: 81.63 kg

DRUGS (2)
  1. ADRIAMYCIN [Suspect]
     Active Substance: DOXORUBICIN HYDROCHLORIDE
     Indication: BREAST CANCER
     Dosage: UNK (INFUSED EVERY 2 WEEKS FOR 4 MONTHS)
  2. TAXOL [Suspect]
     Active Substance: PACLITAXEL
     Indication: BREAST CANCER
     Dosage: UNK (INFUSED EVERY 2 WEEKS FOR 4 MONTHS)

REACTIONS (1)
  - Alopecia [Unknown]
